FAERS Safety Report 8614611-0 (Version None)
Quarter: 2012Q3

REPORT INFORMATION
  Report Type: 
  Country: None (occurrence: None)
  Receive Date: 20120823
  Receipt Date: 20120817
  Transmission Date: 20120928
  Serious: Yes (Hospitalization, Other)
  Sender: FDA-Public Use
  Company Number: SE-ASTELLAS-2012EU005921

PATIENT
  Sex: Female

DRUGS (2)
  1. VESICARE [Suspect]
     Indication: HYPERTONIC BLADDER
     Dosage: 5 MG, UNKNOWN/D
     Route: 048
     Dates: start: 20120727
  2. KEPPRA [Concomitant]
     Indication: EPILEPSY
     Dosage: 250 MG, BID
     Route: 048

REACTIONS (5)
  - SEPSIS [None]
  - MICTURITION URGENCY [None]
  - URINARY TRACT INFECTION [None]
  - KIDNEY INFECTION [None]
  - URINARY RETENTION [None]
